FAERS Safety Report 8948978 (Version 3)
Quarter: 2013Q4

REPORT INFORMATION
  Report Type: Spontaneous
  Country: GB (occurrence: GB)
  Receive Date: 20121206
  Receipt Date: 20131010
  Transmission Date: 20140711
  Serious: Yes (Hospitalization, Other)
  Sender: FDA-Public Use
  Company Number: GB-009507513-1212GBR001487

PATIENT
  Age: 58 Year
  Sex: Female

DRUGS (3)
  1. PEGINTERFERON ALFA-2B [Suspect]
     Indication: HEPATITIS C
     Dosage: 1 DF, QW
     Route: 058
     Dates: start: 20121014
  2. RIBAVIRIN [Suspect]
     Indication: HEPATITIS C
     Dosage: UNK, BID
     Route: 048
     Dates: start: 20121014
  3. TELAPREVIR [Suspect]
     Indication: HEPATITIS C
     Dosage: 750 MG, TID
     Route: 048
     Dates: start: 20121014, end: 20130102

REACTIONS (15)
  - Rectal haemorrhage [Not Recovered/Not Resolved]
  - Rash [Recovered/Resolved]
  - Nausea [Unknown]
  - Platelet count decreased [Not Recovered/Not Resolved]
  - Anaemia [Not Recovered/Not Resolved]
  - Palpitations [Not Recovered/Not Resolved]
  - Mouth ulceration [Not Recovered/Not Resolved]
  - Dehydration [Unknown]
  - Epistaxis [Not Recovered/Not Resolved]
  - Eczema [Not Recovered/Not Resolved]
  - Anxiety [Unknown]
  - Pyrexia [Not Recovered/Not Resolved]
  - Epistaxis [Recovered/Resolved]
  - Eczema [Not Recovered/Not Resolved]
  - Anaemia [Not Recovered/Not Resolved]
